FAERS Safety Report 21131137 (Version 3)
Quarter: 2022Q3

REPORT INFORMATION
  Report Type: Other
  Country: US (occurrence: None)
  Receive Date: 20220726
  Receipt Date: 20220915
  Transmission Date: 20221027
  Serious: Yes (Death)
  Sender: FDA-Public Use
  Company Number: US-ROCHE-3059691

PATIENT
  Sex: Female

DRUGS (2)
  1. OCREVUS [Suspect]
     Active Substance: OCRELIZUMAB
     Indication: Multiple sclerosis
     Dosage: DATE OF SERVICE: 09/OCT/2018 (300 MG), 27/MAR/2019, 11/SEP/2019, 26/FEB/2020, 12/AUG/2020, 31/MAR/20
     Route: 065
     Dates: start: 20180918
  2. FLUXETINE [Concomitant]

REACTIONS (2)
  - COVID-19 pneumonia [Fatal]
  - Peritonitis [Fatal]
